FAERS Safety Report 25515160 (Version 1)
Quarter: 2025Q3

REPORT INFORMATION
  Report Type: Spontaneous
  Country: GB (occurrence: GB)
  Receive Date: 20250703
  Receipt Date: 20250703
  Transmission Date: 20251020
  Serious: Yes (Other)
  Sender: RANBAXY
  Company Number: GB-MHRA-MED-202506191051365400-ZLKVQ

PATIENT
  Age: 52 Year
  Sex: Female

DRUGS (4)
  1. LANSOPRAZOLE [Suspect]
     Active Substance: LANSOPRAZOLE
     Indication: Product used for unknown indication
     Route: 065
  2. METHOTREXATE [Suspect]
     Active Substance: METHOTREXATE
     Indication: Product used for unknown indication
     Route: 065
  3. IBUPROFEN [Suspect]
     Active Substance: IBUPROFEN
     Indication: Product used for unknown indication
     Route: 065
  4. SULFASALAZINE [Suspect]
     Active Substance: SULFASALAZINE
     Indication: Product used for unknown indication
     Route: 065

REACTIONS (3)
  - Joint stiffness [Unknown]
  - Rash [Unknown]
  - Musculoskeletal pain [Unknown]
